FAERS Safety Report 7830225-4 (Version None)
Quarter: 2011Q4

REPORT INFORMATION
  Report Type: 
  Country: None (occurrence: None)
  Receive Date: 20111021
  Receipt Date: 20111018
  Transmission Date: 20120403
  Serious: Yes (Death, Other)
  Sender: FDA-Public Use
  Company Number: PHEH2011US07138

PATIENT
  Sex: Male

DRUGS (3)
  1. RISPERIDONE [Suspect]
     Dosage: UNK UKN, UNK
  2. FANAPT [Suspect]
     Dosage: 6 MG, BID
     Route: 048
     Dates: start: 20100115
  3. SAPHRIS [Suspect]
     Dosage: UNK UKN, UNK

REACTIONS (2)
  - PRIAPISM [None]
  - PULMONARY EMBOLISM [None]
